FAERS Safety Report 10572093 (Version 1)
Quarter: 2014Q4

REPORT INFORMATION
  Report Type: Spontaneous
  Country: US (occurrence: US)
  Receive Date: 20141107
  Receipt Date: 20141107
  Transmission Date: 20150529
  Serious: Yes (Other)
  Sender: FDA-Public Use
  Company Number: US-GLAXOSMITHKLINE-US2014GSK018173

PATIENT
  Age: 37 Year
  Sex: Female

DRUGS (1)
  1. VALACYCLOVIR [Suspect]
     Active Substance: VALACYCLOVIR HYDROCHLORIDE
     Indication: HERPES ZOSTER
     Dosage: 1000 MG, TID

REACTIONS (9)
  - Toxicity to various agents [Recovering/Resolving]
  - Neurological symptom [Unknown]
  - Rash vesicular [Unknown]
  - Confusional state [Unknown]
  - Neurotoxicity [Recovering/Resolving]
  - Asthenia [Unknown]
  - Lethargy [Unknown]
  - Hallucination, visual [Unknown]
  - Paraesthesia [Unknown]
